FAERS Safety Report 18850939 (Version 1)
Quarter: 2021Q1

REPORT INFORMATION
  Report Type: Spontaneous
  Country: US (occurrence: US)
  Receive Date: 20210205
  Receipt Date: 20210205
  Transmission Date: 20210420
  Serious: Yes (Death)
  Sender: FDA-Public Use
  Company Number: US-CELGENEUS-USA-20210201332

PATIENT
  Age: 71 Year
  Sex: Male

DRUGS (4)
  1. THALOMID [Suspect]
     Active Substance: THALIDOMIDE
     Dosage: 100?50 MG
     Route: 048
     Dates: start: 201412
  2. THALOMID [Suspect]
     Active Substance: THALIDOMIDE
     Dosage: 100 MILLIGRAM
     Route: 048
     Dates: start: 20200901
  3. THALOMID [Suspect]
     Active Substance: THALIDOMIDE
     Indication: PLASMA CELL MYELOMA
     Dosage: 200 MILLIGRAM
     Route: 048
     Dates: start: 200704
  4. THALOMID [Suspect]
     Active Substance: THALIDOMIDE
     Dosage: 100?50 MG
     Route: 048
     Dates: start: 200810

REACTIONS (1)
  - Death [Fatal]

NARRATIVE: CASE EVENT DATE: 20210203
